FAERS Safety Report 4648354-5 (Version None)
Quarter: 2005Q2

REPORT INFORMATION
  Report Type: 
  Country: None (occurrence: None)
  Receive Date: 20050429
  Receipt Date: 20040909
  Transmission Date: 20051028
  Serious: Yes (Hospitalization, Other)
  Sender: FDA-Public Use
  Company Number: FR-JNJFOC-20031200894

PATIENT
  Age: 27 Year
  Sex: Male
  Weight: 62 kg

DRUGS (6)
  1. REMICADE [Suspect]
     Route: 042
  2. REMICADE [Suspect]
     Route: 042
  3. REMICADE [Suspect]
     Indication: ANKYLOSING SPONDYLITIS
     Route: 042
  4. NEXEN [Suspect]
     Indication: DRUG USE FOR UNKNOWN INDICATION
     Route: 049
  5. OMEPRAZOLE [Concomitant]
     Route: 049
  6. EFFERALGAN [Concomitant]
     Route: 049

REACTIONS (5)
  - COLITIS ULCERATIVE [None]
  - ERYTHEMA NODOSUM [None]
  - HAEMATOCHEZIA [None]
  - LARGE INTESTINAL ULCER [None]
  - STREPTOCOCCAL INFECTION [None]
